FAERS Safety Report 7281228-2 (Version None)
Quarter: 2011Q1

REPORT INFORMATION
  Report Type: 
  Country: None (occurrence: None)
  Receive Date: 20110208
  Receipt Date: 20110131
  Transmission Date: 20110831
  Serious: Yes (Other)
  Sender: FDA-Public Use
  Company Number: CHPA2011US02009

PATIENT
  Age: 58 Year
  Sex: Male
  Weight: 88.435 kg

DRUGS (3)
  1. GAS-X [Suspect]
     Indication: ABDOMINAL DISTENSION
     Dosage: 187.5 MG, ONCE/SINGLE
     Route: 048
     Dates: start: 20110130, end: 20110130
  2. METFORMIN [Concomitant]
     Indication: DIABETES MELLITUS
     Route: 048
  3. GLIPIZIDE [Concomitant]
     Indication: DIABETES MELLITUS
     Route: 048

REACTIONS (2)
  - HYPERGLYCAEMIA [None]
  - COLD SWEAT [None]
